FAERS Safety Report 6645235-2 (Version None)
Quarter: 2010Q1

REPORT INFORMATION
  Report Type: 
  Country: None (occurrence: None)
  Receive Date: 20100319
  Receipt Date: 20100319
  Transmission Date: 20100710
  Serious: Yes (Hospitalization)
  Sender: FDA-Public Use
  Company Number: None

PATIENT
  Sex: Male
  Weight: 26.3 kg

DRUGS (1)
  1. TAMIFLU [Suspect]

REACTIONS (1)
  - ANAPHYLACTIC REACTION [None]
